FAERS Safety Report 5135407-0 (Version None)
Quarter: 2006Q4

REPORT INFORMATION
  Report Type: 
  Country: None (occurrence: None)
  Receive Date: 20061026
  Receipt Date: 20060731
  Transmission Date: 20070319
  Serious: Yes (Hospitalization)
  Sender: FDA-Public Use
  Company Number: US-GLAXOSMITHKLINE-A0614186A

PATIENT
  Age: 60 Year
  Sex: Male

DRUGS (4)
  1. ADVAIR HFA [Suspect]
     Indication: ASTHMA
     Dosage: 1PUFF TWICE PER DAY
     Route: 055
     Dates: start: 20060301
  2. THEO-DUR [Concomitant]
  3. XANAX [Concomitant]
  4. ALLOPURINOL [Concomitant]

REACTIONS (4)
  - CATARACT [None]
  - DRY THROAT [None]
  - HEART RATE INCREASED [None]
  - VISION BLURRED [None]
